FAERS Safety Report 14557786 (Version 4)
Quarter: 2018Q2

REPORT INFORMATION
  Report Type: Report from Study
  Country: None (occurrence: US)
  Receive Date: 20180221
  Receipt Date: 20180420
  Transmission Date: 20180711
  Serious: Yes (Hospitalization, Other)
  Sender: FDA-Public Use
  Company Number: US-BAUSCH-BL-2018-004767

PATIENT
  Age: 78 Year
  Sex: Male
  Weight: 103.06 kg

DRUGS (5)
  1. BABY ASPIRIN [Concomitant]
     Active Substance: ASPIRIN
     Indication: PRODUCT USED FOR UNKNOWN INDICATION
     Dosage: ONE TABLET EVERY MORNING FROM YEARS
  2. XENAZINE [Suspect]
     Active Substance: TETRABENAZINE
     Route: 065
     Dates: start: 2018
  3. XENAZINE [Suspect]
     Active Substance: TETRABENAZINE
     Indication: HUNTINGTON^S DISEASE
     Route: 065
     Dates: start: 2010
  4. XENAZINE [Suspect]
     Active Substance: TETRABENAZINE
     Route: 065
  5. XENAZINE [Suspect]
     Active Substance: TETRABENAZINE
     Route: 065
     Dates: end: 201801

REACTIONS (5)
  - Monoparesis [Unknown]
  - Treatment noncompliance [Recovered/Resolved]
  - Fall [Recovered/Resolved]
  - Weight decreased [Recovered/Resolved]
  - Dysstasia [Recovered/Resolved]

NARRATIVE: CASE EVENT DATE: 201801
